FAERS Safety Report 25093896 (Version 1)
Quarter: 2025Q1

REPORT INFORMATION
  Report Type: Spontaneous
  Country: US (occurrence: US)
  Receive Date: 20250319
  Receipt Date: 20250319
  Transmission Date: 20250408
  Serious: No
  Sender: ELI LILLY AND COMPANY
  Company Number: US-ELI_LILLY_AND_COMPANY-US202503015361

PATIENT
  Age: 21 Year
  Sex: Female

DRUGS (2)
  1. HUMALOG [Suspect]
     Active Substance: INSULIN LISPRO
     Indication: Diabetic ketosis
     Dates: start: 20250315, end: 20250316
  2. BACLOFEN [Concomitant]
     Active Substance: BACLOFEN
     Indication: Pancreatitis chronic
     Dates: start: 20250120

REACTIONS (6)
  - Urine ketone body [Unknown]
  - Dyspnoea [Unknown]
  - Myalgia [Unknown]
  - Nausea [Unknown]
  - Blood glucose increased [Recovered/Resolved]
  - Drug ineffective [Recovered/Resolved]

NARRATIVE: CASE EVENT DATE: 20250315
